FAERS Safety Report 4507534-X (Version None)
Quarter: 2004Q4

REPORT INFORMATION
  Report Type: 
  Country: None (occurrence: None)
  Receive Date: 20041018
  Receipt Date: 20040812
  Transmission Date: 20050328
  Serious: No
  Sender: FDA-Public Use
  Company Number: 208412

PATIENT
  Age: 34 Year
  Sex: Female
  Weight: 56 kg

DRUGS (6)
  1. XOLAIR [Suspect]
     Indication: ASTHMA
     Dosage: 375 MG,Q2W, SUBCUTANEOUS
     Route: 058
     Dates: start: 20040106, end: 20040805
  2. ADVAIR (FLUTICASONE PROPIONATE, SALMETEROL XINAFOATE) [Concomitant]
  3. SINGULAIR [Concomitant]
  4. NASACORT AQ (TRIAMCINOLONE ACETONIDE) [Concomitant]
  5. ZYRTEC [Concomitant]
  6. PATANOL [Concomitant]

REACTIONS (2)
  - DERMATITIS [None]
  - INFLUENZA LIKE ILLNESS [None]
